FAERS Safety Report 6652904-7 (Version None)
Quarter: 2010Q1

REPORT INFORMATION
  Report Type: 
  Country: None (occurrence: None)
  Receive Date: 20100326
  Receipt Date: 20100315
  Transmission Date: 20100710
  Serious: No
  Sender: FDA-Public Use
  Company Number: US-MYLANLABS-2010S1002466

PATIENT
  Age: 38 Year
  Sex: Female
  Weight: 61.24 kg

DRUGS (6)
  1. NITROFURANTOIN MONOHYDRATE/MACROCRYSTALS CAPSULES [Suspect]
     Indication: CYSTITIS
     Route: 048
     Dates: start: 20100204, end: 20100205
  2. CONTRACEPTIVES NOS [Concomitant]
     Indication: CONTRACEPTION
     Route: 048
  3. ZOFRAN [Concomitant]
     Indication: NAUSEA
     Dates: start: 20070101
  4. METRONIDAZOLE [Concomitant]
     Route: 048
     Dates: start: 20100202, end: 20100209
  5. TRI-SPRINTEC [Concomitant]
  6. TIGAN [Concomitant]
     Dosage: PRN
     Dates: start: 20091226

REACTIONS (6)
  - ARTHRALGIA [None]
  - DEHYDRATION [None]
  - DIARRHOEA [None]
  - DYSPNOEA [None]
  - HEADACHE [None]
  - VOMITING [None]
